FAERS Safety Report 8551985-3 (Version None)
Quarter: 2012Q3

REPORT INFORMATION
  Report Type: 
  Country: None (occurrence: None)
  Receive Date: 20120730
  Receipt Date: 20120720
  Transmission Date: 20120928
  Serious: Yes (Other)
  Sender: FDA-Public Use
  Company Number: US-BAYER-2012-076261

PATIENT

DRUGS (3)
  1. ASPIRIN [Suspect]
  2. XARELTO [Interacting]
     Indication: THROMBOSIS PROPHYLAXIS
     Dosage: 10 MG, QD
     Route: 048
  3. XARELTO [Interacting]
     Indication: KNEE ARTHROPLASTY

REACTIONS (3)
  - WOUND SECRETION [None]
  - HAEMATOMA [None]
  - INCREASED TENDENCY TO BRUISE [None]
